FAERS Safety Report 15658720 (Version 2)
Quarter: 2018Q4

REPORT INFORMATION
  Report Type: Spontaneous
  Country: US (occurrence: US)
  Receive Date: 20181126
  Receipt Date: 20181212
  Transmission Date: 20190205
  Serious: No
  Sender: FDA-Public Use
  Company Number: US-ALKERMES INC.-ALK-2018-006388

PATIENT
  Age: 56 Year
  Sex: Female

DRUGS (2)
  1. VIVITROL [Suspect]
     Active Substance: NALTREXONE
     Indication: ALCOHOLISM
     Dosage: 380 MG, QMO
     Route: 030
     Dates: start: 20180829
  2. NALTREXONE [Concomitant]
     Active Substance: NALTREXONE
     Indication: ALCOHOLISM
     Dosage: UNK
     Route: 048
     Dates: end: 201810

REACTIONS (10)
  - Hypokinesia [Unknown]
  - Gait disturbance [Not Recovered/Not Resolved]
  - Peripheral swelling [Unknown]
  - Arthralgia [Unknown]
  - Paralysis [Not Recovered/Not Resolved]
  - Joint swelling [Unknown]
  - Pain in extremity [Unknown]
  - Depressed mood [Unknown]
  - Pain [Unknown]
  - Oedema peripheral [Recovering/Resolving]

NARRATIVE: CASE EVENT DATE: 2018
